FAERS Safety Report 26080548 (Version 1)
Quarter: 2025Q4

REPORT INFORMATION
  Report Type: Spontaneous
  Country: US (occurrence: US)
  Receive Date: 20251124
  Receipt Date: 20251124
  Transmission Date: 20260117
  Serious: No
  Sender: ALKEM
  Company Number: US-ALKEM LABORATORIES LIMITED-US-ALKEM-2025-07154

PATIENT
  Age: 25 Year
  Sex: Female

DRUGS (8)
  1. METHYLPHENIDATE HYDROCHLORIDE [Suspect]
     Active Substance: METHYLPHENIDATE HYDROCHLORIDE
     Indication: Attention deficit hyperactivity disorder
     Dosage: 5 MILLIGRAM, QD (IMMEDIATE-RELEASE)
     Route: 065
  2. METHYLPHENIDATE HYDROCHLORIDE [Suspect]
     Active Substance: METHYLPHENIDATE HYDROCHLORIDE
     Dosage: 5 MILLIGRAM, BID (BY 2?MONTHS POSTPARTUM)
     Route: 065
  3. METHYLPHENIDATE HYDROCHLORIDE [Suspect]
     Active Substance: METHYLPHENIDATE HYDROCHLORIDE
     Dosage: 18 MILLIGRAM, QD (CONTROLLED RELEASE) (AT 3?MONTHS POSTPARTUM) (TABLET)
     Route: 048
  4. METHYLPHENIDATE HYDROCHLORIDE [Suspect]
     Active Substance: METHYLPHENIDATE HYDROCHLORIDE
     Dosage: 27 MILLIGRAM, QD (CONTROLLED RELEASE) (AT 4 MONTHS POSTPARTUM) (TABLET)
     Route: 048
  5. METHYLPHENIDATE HYDROCHLORIDE [Suspect]
     Active Substance: METHYLPHENIDATE HYDROCHLORIDE
     Dosage: 36 MILLIGRAM, QD (CONTROLLED RELEASE) (AT 6 MONTHS POSTPARTUM) (TABLET)
     Route: 048
  6. METHYLPHENIDATE HYDROCHLORIDE [Suspect]
     Active Substance: METHYLPHENIDATE HYDROCHLORIDE
     Dosage: 36 MILLIGRAM, QD (EXTENDED-RELEASE)
     Route: 065
  7. BUPROPION [Suspect]
     Active Substance: BUPROPION
     Indication: Depression
     Dosage: 300 MILLIGRAM, QD (EXTENDED-RELEASE)
     Route: 065
  8. BUPROPION [Suspect]
     Active Substance: BUPROPION
     Indication: Attention deficit hyperactivity disorder

REACTIONS (1)
  - Maternal exposure during breast feeding [Unknown]
